FAERS Safety Report 9997749 (Version 1)
Quarter: 2014Q1

REPORT INFORMATION
  Report Type: Spontaneous
  Country: US (occurrence: None)
  Receive Date: 20140304
  Receipt Date: 20140304
  Transmission Date: 20141002
  Serious: Yes (Hospitalization, Other)
  Sender: FDA-Public Use
  Company Number: RB-50033-2013

PATIENT
  Age: 25 Year
  Sex: Female

DRUGS (2)
  1. SUBOXONE 8 MG [Suspect]
     Indication: DRUG DEPENDENCE
     Route: 060
     Dates: start: 2007, end: 2007
  2. BUPRENORPHINE [Suspect]
     Indication: DRUG DEPENDENCE
     Dates: start: 2007, end: 201212

REACTIONS (3)
  - Dehydration [None]
  - Migraine [None]
  - Abdominal discomfort [None]
